FAERS Safety Report 6914316-8 (Version None)
Quarter: 2010Q3

REPORT INFORMATION
  Report Type: 
  Country: None (occurrence: None)
  Receive Date: 20100809
  Receipt Date: 20100804
  Transmission Date: 20110219
  Serious: Yes (Hospitalization)
  Sender: FDA-Public Use
  Company Number: CH-BRISTOL-MYERS SQUIBB COMPANY-15226889

PATIENT
  Age: 60 Year
  Sex: Male

DRUGS (7)
  1. CETUXIMAB [Suspect]
     Indication: NON-SMALL CELL LUNG CANCER
     Route: 042
     Dates: start: 20100715, end: 20100730
  2. CISPLATIN [Suspect]
     Indication: NON-SMALL CELL LUNG CANCER
     Dosage: 1 DF = 750/48 MG
     Route: 042
     Dates: start: 20100715
  3. DOCETAXEL [Suspect]
     Indication: NON-SMALL CELL LUNG CANCER
     Route: 042
     Dates: start: 20100715
  4. NEUPOGEN [Concomitant]
     Dosage: 48 MILLION IE
     Route: 058
     Dates: start: 20100717, end: 20100724
  5. ESOMEPRAZOLE MAGNESIUM [Concomitant]
     Route: 048
     Dates: start: 20100722
  6. DOMPERIDONE [Concomitant]
     Route: 048
     Dates: start: 20100722
  7. METOCLOPRAMIDE [Concomitant]
     Route: 048
     Dates: start: 20100730

REACTIONS (3)
  - ARTHRALGIA [None]
  - BRONCHOPNEUMONIA [None]
  - MUSCULOSKELETAL PAIN [None]
